FAERS Safety Report 14621278 (Version 2)
Quarter: 2018Q1

REPORT INFORMATION
  Report Type: Report from Study
  Country: None (occurrence: CA)
  Receive Date: 20180310
  Receipt Date: 20180322
  Transmission Date: 20180509
  Serious: Yes (Hospitalization, Other)
  Sender: FDA-Public Use
  Company Number: CA-ABBVIE-18K-028-2278877-00

PATIENT
  Sex: Female

DRUGS (4)
  1. HUMIRA [Suspect]
     Active Substance: ADALIMUMAB
     Route: 058
     Dates: end: 2009
  2. HUMIRA [Suspect]
     Active Substance: ADALIMUMAB
     Route: 058
     Dates: end: 2010
  3. HUMIRA [Suspect]
     Active Substance: ADALIMUMAB
     Route: 058
  4. HUMIRA [Suspect]
     Active Substance: ADALIMUMAB
     Indication: CROHN^S DISEASE
     Route: 058
     Dates: start: 20080814, end: 2008

REACTIONS (10)
  - Intestinal obstruction [Recovered/Resolved]
  - Stomal hernia [Recovered/Resolved]
  - Exposure during pregnancy [Unknown]
  - Myalgia [Unknown]
  - Arthralgia [Unknown]
  - Intestinal obstruction [Recovered/Resolved]
  - Gastrointestinal anastomotic stenosis [Recovered/Resolved]
  - Hernia [Recovered/Resolved]
  - Intestinal obstruction [Recovered/Resolved]
  - Live birth [Unknown]

NARRATIVE: CASE EVENT DATE: 2009
